FAERS Safety Report 9531936 (Version 1)
Quarter: 2013Q3

REPORT INFORMATION
  Report Type: Spontaneous
  Country: US (occurrence: US)
  Receive Date: 20130918
  Receipt Date: 20130918
  Transmission Date: 20140515
  Serious: No
  Sender: FDA-Public Use
  Company Number: US-PFIZER INC-2013267247

PATIENT
  Age: 75 Year
  Sex: Female

DRUGS (4)
  1. ACCUPRIL [Suspect]
     Dosage: UNK
  2. RAMIPRIL [Suspect]
     Dosage: UNK
  3. LISINOPRIL [Suspect]
  4. ENALAPRIL [Suspect]

REACTIONS (1)
  - Drug hypersensitivity [Unknown]
